FAERS Safety Report 9443590 (Version 1)
Quarter: 2013Q3

REPORT INFORMATION
  Report Type: Spontaneous
  Country: US (occurrence: US)
  Receive Date: 20130806
  Receipt Date: 20130806
  Transmission Date: 20140515
  Serious: Yes (Hospitalization)
  Sender: FDA-Public Use
  Company Number: US-FRI-1000047497

PATIENT
  Age: 65 Year
  Sex: Male
  Weight: 67 kg

DRUGS (7)
  1. DALIRESP [Suspect]
     Indication: CHRONIC OBSTRUCTIVE PULMONARY DISEASE
     Dosage: 500 MCG
     Dates: start: 20130318, end: 20130512
  2. SPIRIVA [Concomitant]
  3. ADVAIR [Concomitant]
     Dosage: 500/50
  4. METFORMIN [Concomitant]
     Dosage: 1000 MG
  5. POTASSIUM CHLORIDE [Concomitant]
     Dosage: 20 MEQ
  6. VENTOLIN HFA [Concomitant]
  7. PREDNISONE [Concomitant]

REACTIONS (2)
  - Hypotension [Recovered/Resolved]
  - Orthostatic hypotension [Recovered/Resolved]
